FAERS Safety Report 20518862 (Version 2)
Quarter: 2022Q1

REPORT INFORMATION
  Report Type: Spontaneous
  Country: DE (occurrence: DE)
  Receive Date: 20220225
  Receipt Date: 20220309
  Transmission Date: 20220423
  Serious: Yes (Life-Threatening, Hospitalization)
  Sender: FDA-Public Use
  Company Number: DE-DCGMA-22196649

PATIENT
  Age: 58 Year
  Sex: Female
  Weight: 63 kg

DRUGS (1)
  1. IFOSFAMIDE [Suspect]
     Active Substance: IFOSFAMIDE
     Indication: Sarcoma
     Route: 042
     Dates: start: 20220122, end: 20220126

REACTIONS (2)
  - Psychotic disorder [Not Recovered/Not Resolved]
  - Suspected product quality issue [Not Recovered/Not Resolved]

NARRATIVE: CASE EVENT DATE: 20220122
